FAERS Safety Report 20218822 (Version 1)
Quarter: 2021Q4

REPORT INFORMATION
  Report Type: Spontaneous
  Country: US (occurrence: US)
  Receive Date: 20211222
  Receipt Date: 20211222
  Transmission Date: 20220303
  Serious: No
  Sender: FDA-Public Use
  Company Number: US-BioHaven Pharmaceuticals-2021BHV000776

PATIENT
  Age: 55 Year
  Sex: Male

DRUGS (1)
  1. NURTEC ODT [Suspect]
     Active Substance: RIMEGEPANT SULFATE
     Indication: Migraine
     Dosage: PATIENT WAS DISPENSED 15 TABLETS ON 30-SEP-2021 AND TOOK ONLY 12 DOSES.
     Route: 048
     Dates: start: 20210930

REACTIONS (1)
  - Insomnia [Recovered/Resolved]
